FAERS Safety Report 15713187 (Version 1)
Quarter: 2018Q4

REPORT INFORMATION
  Report Type: Spontaneous
  Country: US (occurrence: US)
  Receive Date: 20181212
  Receipt Date: 20181212
  Transmission Date: 20190205
  Serious: Yes (Other)
  Sender: FDA-Public Use
  Company Number: US-TEVA-2018-US-982933

PATIENT
  Age: 19 Year
  Sex: Male

DRUGS (1)
  1. CLARAVIS [Suspect]
     Active Substance: ISOTRETINOIN
     Indication: ACNE
     Dates: start: 20181119

REACTIONS (2)
  - Oral mucosal blistering [Unknown]
  - Oropharyngeal blistering [Unknown]

NARRATIVE: CASE EVENT DATE: 20181122
